FAERS Safety Report 9772225 (Version 1)
Quarter: 2013Q4

REPORT INFORMATION
  Report Type: Spontaneous
  Country: US (occurrence: None)
  Receive Date: 20131218
  Receipt Date: 20131218
  Transmission Date: 20140711
  Serious: Yes (Death)
  Sender: FDA-Public Use
  Company Number: None

PATIENT
  Age: 84 Year
  Sex: Male
  Weight: 88 kg

DRUGS (23)
  1. DECITABINE [Suspect]
     Indication: ACUTE MYELOID LEUKAEMIA
     Dosage: 20MG/M2;QDX10;28DAYCYCLE
     Dates: start: 20131111, end: 20131120
  2. BENEDRYL ALLERGY ORAL CAPSULE [Concomitant]
  3. FLOMAX ORAL CAPSULE [Concomitant]
  4. LINEZOLID [Concomitant]
  5. NITROSTAT [Concomitant]
  6. TRAMADOL HCL [Concomitant]
  7. VORICONAZOLE [Concomitant]
  8. HEPARINE (PORCINE) LOCK FLUSH IV SOLUTION [Concomitant]
  9. ACETAMINOPHEN [Concomitant]
  10. BACTRIM DS [Concomitant]
  11. DIGOXIN [Concomitant]
  12. SIMVASTATIN [Concomitant]
  13. ESOMEPRAZOLE MAGNESIUM ORAL CAPSULE DELAYED RELEASE [Concomitant]
  14. FAMOTIDINE [Concomitant]
  15. FINASTERIDE [Concomitant]
  16. ISOSORBIDE MONONITRATE ER [Concomitant]
  17. KETOCONAZOLE EXTERNAL CREAM 1% [Concomitant]
  18. LANTUS SUBCUTANEOUS SOLUTION [Concomitant]
  19. ONDANSETRON HCL [Concomitant]
  20. TOPROL XL ORAL TABLET EXTENDED RELEASE [Concomitant]
  21. VALTREX [Concomitant]
  22. CEFEPIME HCL [Concomitant]
  23. MICAFUNGIN SODIUM [Concomitant]

REACTIONS (1)
  - Death [None]
